FAERS Safety Report 8123161-X (Version None)
Quarter: 2012Q1

REPORT INFORMATION
  Report Type: 
  Country: None (occurrence: None)
  Receive Date: 20120208
  Receipt Date: 20120202
  Transmission Date: 20120608
  Serious: Yes (Other)
  Sender: FDA-Public Use
  Company Number: US-AMGEN-USASP2011028444

PATIENT
  Age: 45 Year
  Sex: Female
  Weight: 61.678 kg

DRUGS (8)
  1. VITAMIN D [Concomitant]
     Dosage: 2000 IU, UNK
     Dates: start: 20110301
  2. ARIMIDEX [Concomitant]
     Dosage: 1 MG, UNK
     Dates: start: 20090126, end: 20110219
  3. LEXAPRO [Concomitant]
     Dosage: 20 MG, UNK
     Dates: start: 20100910
  4. VITAMIN D [Concomitant]
     Dosage: 50000 IU, UNK
     Dates: end: 20110301
  5. ZOMETA [Concomitant]
     Dosage: 4 MG, UNK
     Dates: end: 20110218
  6. XGEVA [Suspect]
     Indication: METASTASES TO BONE
     Dosage: 120 MG, QMO
     Route: 058
     Dates: start: 20110218
  7. CALCIUM [Concomitant]
     Dosage: 1500 MG, UNK
  8. AROMASIN [Concomitant]
     Dosage: 25 MG, UNK
     Dates: start: 20110219

REACTIONS (2)
  - NEOPLASM MALIGNANT [None]
  - ARTHRALGIA [None]
